FAERS Safety Report 24083862 (Version 2)
Quarter: 2024Q3

REPORT INFORMATION
  Report Type: Spontaneous
  Country: CA (occurrence: CA)
  Receive Date: 20240712
  Receipt Date: 20240905
  Transmission Date: 20241017
  Serious: Yes (Other)
  Sender: PFIZER
  Company Number: CA-PFIZER INC-202200951229

PATIENT
  Age: 60 Year
  Sex: Female

DRUGS (4)
  1. ABRILADA [Suspect]
     Active Substance: ADALIMUMAB-AFZB
     Indication: Crohn^s disease
     Dosage: 160MG WEEK 0, 80MG WEEK 2, THEN 40MG WEEK 4 AND EVERY OTHER WEEK
     Route: 058
     Dates: start: 20220708, end: 202211
  2. ABRILADA [Suspect]
     Active Substance: ADALIMUMAB-AFZB
     Dosage: 40 MG, WEEKLY
     Route: 058
     Dates: start: 202212
  3. CENTRUM JR [MINERALS NOS;VITAMINS NOS] [Concomitant]
     Dosage: 1 DF, DOSAGE NOT AVAILABLE
     Route: 065
  4. IRON [Concomitant]
     Active Substance: IRON
     Dosage: 1 DF, DOSAGE NOT AVAILABLE
     Route: 065

REACTIONS (9)
  - Ileostomy [Unknown]
  - Drug ineffective [Unknown]
  - Injection site pain [Unknown]
  - Fatigue [Unknown]
  - Dizziness [Unknown]
  - Fistula [Recovering/Resolving]
  - Stoma site discomfort [Unknown]
  - Abscess [Unknown]
  - Off label use [Unknown]

NARRATIVE: CASE EVENT DATE: 20220101
